FAERS Safety Report 15535620 (Version 4)
Quarter: 2020Q2

REPORT INFORMATION
  Report Type: Spontaneous
  Country: US (occurrence: US)
  Receive Date: 20181022
  Receipt Date: 20200529
  Transmission Date: 20200713
  Serious: No
  Sender: FDA-Public Use
  Company Number: US-PFIZER INC-2017532794

PATIENT
  Age: 27 Year
  Sex: Female
  Weight: 99.79 kg

DRUGS (12)
  1. LYRICA [Suspect]
     Active Substance: PREGABALIN
     Indication: FIBROMYALGIA
     Dosage: 75 MG, 1X/DAY
     Dates: start: 2016
  2. ONDANSETRON [Concomitant]
     Active Substance: ONDANSETRON
     Indication: NAUSEA
     Dosage: 4 MG, 3X/DAY (THREE TIMES DAILY, EVERY 8 HOURS BY MOUTH)
     Route: 048
     Dates: start: 201804
  3. DULOXETINE. [Concomitant]
     Active Substance: DULOXETINE
     Indication: FIBROMYALGIA
     Dosage: 120 MG, 1X/DAY (TAKE 2 CAPSULES ONCE A DAY AT NIGHT BY MOUTH)
     Route: 048
     Dates: start: 201804
  4. RANITIDINE. [Concomitant]
     Active Substance: RANITIDINE
     Indication: OESOPHAGEAL SPASM
  5. OMEPRAZOLE. [Concomitant]
     Active Substance: OMEPRAZOLE
     Indication: GASTROOESOPHAGEAL REFLUX DISEASE
  6. OMEPRAZOLE. [Concomitant]
     Active Substance: OMEPRAZOLE
     Indication: OESOPHAGEAL SPASM
     Dosage: 40 MG, 1X/DAY (1 CAPSULE ONCE A DAY BY MOUTH)
     Route: 048
     Dates: start: 201804
  7. LEVOTHYROXINE. [Concomitant]
     Active Substance: LEVOTHYROXINE
     Indication: HYPOTHYROIDISM
     Dosage: 50 UG, 1X/DAY (ONCE EVERY MORNING BY MOUTH)
     Route: 048
     Dates: start: 201806
  8. PRAMIPEXOLE. [Concomitant]
     Active Substance: PRAMIPEXOLE
     Indication: RESTLESS LEGS SYNDROME
     Dosage: .5 MG, 1X/DAY (2 TABLETS AT NIGHT BY MOUTH)
     Route: 048
     Dates: start: 201708
  9. VITAMIN D2 [Concomitant]
     Active Substance: ERGOCALCIFEROL
     Indication: VITAMIN D DEFICIENCY
     Dosage: 50000 IU, WEEKLY (TAKES 1 CAPSULE ONCE A WEEK BY MOUTH)
     Route: 048
     Dates: start: 201809
  10. RANITIDINE. [Concomitant]
     Active Substance: RANITIDINE
     Indication: GASTROOESOPHAGEAL REFLUX DISEASE
     Dosage: 300 MG, 1X/DAY (TAKES 2 TABLET AT NIGHT BY MOUTH)
     Route: 048
     Dates: start: 201804
  11. HYDROCODONE [Concomitant]
     Active Substance: HYDROCODONE
     Indication: PELVIC PAIN
     Dosage: UNK UNK, AS NEEDED (10MG TABLETS CAN TAKE UP TO 3 TABLETS A DAY BY MOUTH AS NEEDED)
     Route: 048
     Dates: start: 201803
  12. LYRICA [Suspect]
     Active Substance: PREGABALIN
     Dosage: 200 MG, 3X/DAY
     Route: 048

REACTIONS (7)
  - Constipation [Recovered/Resolved]
  - Nausea [Recovering/Resolving]
  - Withdrawal syndrome [Unknown]
  - Diarrhoea [Recovering/Resolving]
  - Malaise [Unknown]
  - Decreased appetite [Recovering/Resolving]
  - Off label use [Unknown]

NARRATIVE: CASE EVENT DATE: 20181002
